FAERS Safety Report 6228336-2 (Version None)
Quarter: 2009Q2

REPORT INFORMATION
  Report Type: 
  Country: None (occurrence: None)
  Receive Date: 20090612
  Receipt Date: 20090601
  Transmission Date: 20091009
  Serious: Yes (Other)
  Sender: FDA-Public Use
  Company Number: JP-PFIZER INC-2009214595

PATIENT
  Age: 41 Year

DRUGS (5)
  1. ZOLOFT [Suspect]
     Indication: BULIMIA NERVOSA
     Dosage: UNK
     Route: 048
     Dates: start: 20090420, end: 20090507
  2. ZOLOFT [Suspect]
     Indication: ADJUSTMENT DISORDER
  3. PREMARIN [Suspect]
     Dates: start: 20070101
  4. SOPHIA A [Suspect]
     Dates: start: 20070101
  5. HUMULIN R [Suspect]
     Dosage: 100 UNITS
     Route: 042
     Dates: start: 20070101

REACTIONS (1)
  - ORAL MUCOSAL EXFOLIATION [None]
